FAERS Safety Report 21979683 (Version 1)
Quarter: 2023Q1

REPORT INFORMATION
  Report Type: Spontaneous
  Country: CH (occurrence: CH)
  Receive Date: 20230210
  Receipt Date: 20230210
  Transmission Date: 20230417
  Serious: Yes (Hospitalization)
  Sender: FDA-Public Use
  Company Number: CH-MEDA-M-EU-2010040316

PATIENT
  Age: 31 Year
  Sex: Female

DRUGS (4)
  1. PARLODEL [Suspect]
     Active Substance: BROMOCRIPTINE MESYLATE
     Indication: Mastitis postpartum
     Dosage: 1 MG, UNK (2X0.5 MG)
     Route: 065
     Dates: start: 20090708, end: 200907
  2. AMOXICILLIN\CLAVULANIC ACID [Suspect]
     Active Substance: AMOXICILLIN\CLAVULANIC ACID
     Indication: Mastitis postpartum
     Dosage: 1 GRAM, QD
     Route: 048
     Dates: start: 20090708, end: 20090710
  3. AMOXICILLIN\CLAVULANIC ACID [Suspect]
     Active Substance: AMOXICILLIN\CLAVULANIC ACID
     Indication: Mastitis postpartum
     Dosage: 3 G, UNK
     Route: 065
     Dates: start: 20090708, end: 20090710
  4. MEFENAMIC ACID [Suspect]
     Active Substance: MEFENAMIC ACID
     Indication: Mastitis postpartum
     Dosage: 2500 MILLIGRAM TOTAL
     Route: 048
     Dates: start: 200907, end: 20090710

REACTIONS (5)
  - Mediastinal mass [Recovered/Resolved]
  - Type I hypersensitivity [Recovered/Resolved]
  - Urticaria [Recovered/Resolved]
  - Chest pain [Recovered/Resolved]
  - Dyspnoea [Recovered/Resolved]

NARRATIVE: CASE EVENT DATE: 20090708
